FAERS Safety Report 13813792 (Version 2)
Quarter: 2017Q3

REPORT INFORMATION
  Report Type: Spontaneous
  Country: US (occurrence: US)
  Receive Date: 20170731
  Receipt Date: 20170804
  Transmission Date: 20171127
  Serious: Yes (Other)
  Sender: FDA-Public Use
  Company Number: US-PFIZER INC-2017327421

PATIENT
  Age: 65 Year
  Sex: Female
  Weight: 95.69 kg

DRUGS (24)
  1. ASPIRIN. [Concomitant]
     Active Substance: ASPIRIN
     Dosage: 325 MG, DAILY
  2. HYDROCHLOROTHIAZIDE. [Concomitant]
     Active Substance: HYDROCHLOROTHIAZIDE
     Indication: DIURETIC THERAPY
     Dosage: 25 MG, DAILY
     Route: 048
  3. METHYLSULFONYLMETHANE [Concomitant]
     Active Substance: DIMETHYL SULFONE
     Dosage: 1000 MG, 2X/DAY
  4. LANTUS [Concomitant]
     Active Substance: INSULIN GLARGINE
     Dosage: 40 IU, 1X/DAY, (QHS)
  5. NOVOLOG [Concomitant]
     Active Substance: INSULIN ASPART
     Indication: TYPE 2 DIABETES MELLITUS
     Dosage: 100 IU/ML, UNK
     Route: 058
  6. LANTUS [Concomitant]
     Active Substance: INSULIN GLARGINE
     Indication: TYPE 2 DIABETES MELLITUS
     Dosage: 100 IU/ML, UNK
     Route: 058
  7. RANITIDINE. [Concomitant]
     Active Substance: RANITIDINE
     Dosage: 150 MG, 2X/DAY
     Route: 048
  8. GENOTROPIN [Suspect]
     Active Substance: SOMATROPIN
     Indication: GROWTH HORMONE DEFICIENCY
     Dosage: 0.8 MG, DAILY
  9. GENOTROPIN [Concomitant]
     Active Substance: SOMATROPIN
     Dosage: 0.8 MG, UNK
     Route: 058
  10. LASIX [Concomitant]
     Active Substance: FUROSEMIDE
     Dosage: 20 MG, DAILY
     Route: 048
  11. NADOLOL. [Concomitant]
     Active Substance: NADOLOL
     Indication: BLOOD PRESSURE ABNORMAL
     Dosage: 20 MG, 1X/DAY
     Route: 048
  12. GENOTROPIN [Suspect]
     Active Substance: SOMATROPIN
     Indication: HYPOTHALAMO-PITUITARY DISORDER
     Dosage: 0.8 MG, DAILY
     Dates: start: 201703
  13. LISINOPRIL. [Concomitant]
     Active Substance: LISINOPRIL
     Indication: ESSENTIAL HYPERTENSION
     Dosage: 5 MG, DAILY
     Route: 048
  14. LISINOPRIL. [Concomitant]
     Active Substance: LISINOPRIL
     Indication: BLOOD PRESSURE ABNORMAL
     Dosage: 20 MG, 1X/DAY
  15. TAMOXIFEN [Concomitant]
     Active Substance: TAMOXIFEN
     Indication: BREAST CANCER
     Dosage: 20 MG, 1X/DAY
     Route: 048
  16. VITAMIN B12 [Concomitant]
     Active Substance: CYANOCOBALAMIN
     Dosage: 2500 UG, DAILY
  17. HYDROXYZINE PAMOATE. [Concomitant]
     Active Substance: HYDROXYZINE PAMOATE
     Dosage: 25 MG, UNK
     Route: 048
  18. GENOTROPIN [Suspect]
     Active Substance: SOMATROPIN
     Indication: HYPOPITUITARISM
     Dosage: 1 MG, DAILY
     Dates: start: 2013, end: 201703
  19. ERGOCALCIFEROL. [Concomitant]
     Active Substance: ERGOCALCIFEROL
     Dosage: 50000 IU, UNK, (1.25 MG)
     Route: 048
  20. XANAX [Concomitant]
     Active Substance: ALPRAZOLAM
     Dosage: 1 MG, 3X/DAY
     Route: 048
  21. SEROQUEL [Concomitant]
     Active Substance: QUETIAPINE FUMARATE
     Dosage: 25 MG, 1X/DAY, (AT BEDTIME)
     Route: 048
  22. CORGARD [Concomitant]
     Active Substance: NADOLOL
     Dosage: 20 MG, DAILY
     Route: 048
  23. VITAMIN B COMPLEX [Concomitant]
     Active Substance: CYANOCOBALAMIN\DEXPANTHENOL\NIACINAMIDE\PYRIDOXINE HYDROCHLORIDE\RIBOFLAVIN 5^-PHOSPHATE SODIUM\THIAMINE HYDROCHLORIDE\VITAMIN B COMPLEX
     Dosage: 1 DF, DAILY
     Route: 048
  24. INSULIN [Concomitant]
     Active Substance: INSULIN NOS
     Dosage: UNK, (5 MM)

REACTIONS (5)
  - Pain in extremity [Unknown]
  - Abdominal distension [Unknown]
  - Seizure [Recovered/Resolved]
  - Pain [Unknown]
  - Heart rate increased [Unknown]

NARRATIVE: CASE EVENT DATE: 2016
